FAERS Safety Report 8138753-1 (Version None)
Quarter: 2012Q1

REPORT INFORMATION
  Report Type: 
  Country: None (occurrence: None)
  Receive Date: 20120215
  Receipt Date: 20120210
  Transmission Date: 20120608
  Serious: Yes (Hospitalization)
  Sender: FDA-Public Use
  Company Number: JP-GLAXOSMITHKLINE-B0761913A

PATIENT
  Sex: Female
  Weight: 41 kg

DRUGS (8)
  1. GASMOTIN [Concomitant]
     Dosage: 15MG PER DAY
     Route: 048
  2. LITHIUM CARBONATE [Concomitant]
     Dosage: 600MG PER DAY
     Route: 048
  3. MUCOSTA [Concomitant]
     Dosage: 300MG PER DAY
     Route: 048
  4. SEROQUEL [Concomitant]
     Dosage: 25MG PER DAY
     Route: 048
  5. LENDORMIN [Concomitant]
     Dosage: .25MG PER DAY
     Route: 048
  6. TOLEDOMIN [Concomitant]
     Dosage: 50MG PER DAY
     Route: 048
  7. LAMICTAL [Suspect]
     Dosage: 50MG PER DAY
     Route: 048
     Dates: start: 20111029, end: 20111105
  8. LAMICTAL [Suspect]
     Indication: BIPOLAR DISORDER
     Dosage: 25MG PER DAY
     Route: 048
     Dates: start: 20111025, end: 20111028

REACTIONS (7)
  - PARAESTHESIA MUCOSAL [None]
  - ASPARTATE AMINOTRANSFERASE INCREASED [None]
  - DRUG ERUPTION [None]
  - ALANINE AMINOTRANSFERASE INCREASED [None]
  - C-REACTIVE PROTEIN INCREASED [None]
  - RASH [None]
  - PYREXIA [None]
